FAERS Safety Report 5720854-6 (Version None)
Quarter: 2008Q2

REPORT INFORMATION
  Report Type: 
  Country: None (occurrence: None)
  Receive Date: 20080429
  Receipt Date: 20070702
  Transmission Date: 20081010
  Serious: No
  Sender: FDA-Public Use
  Company Number: A0661303A

PATIENT
  Age: 71 Year
  Sex: Male

DRUGS (4)
  1. SEREVENT [Suspect]
     Indication: PULMONARY FIBROSIS
     Dosage: 1PUFF TWICE PER DAY
     Route: 055
     Dates: start: 20070620
  2. N-ACETYL-CYSTEINE [Concomitant]
  3. MUCINEX [Concomitant]
  4. OXYGEN [Concomitant]

REACTIONS (1)
  - DRUG INEFFECTIVE [None]
